FAERS Safety Report 7469622-8 (Version None)
Quarter: 2011Q2

REPORT INFORMATION
  Report Type: 
  Country: None (occurrence: None)
  Receive Date: 20110429
  Receipt Date: 20110419
  Transmission Date: 20111010
  Serious: Yes (Other)
  Sender: FDA-Public Use
  Company Number: 894404

PATIENT
  Age: 61 Year
  Sex: Female
  Weight: 71.36 kg

DRUGS (1)
  1. MORPHINE SULFATE [Suspect]
     Indication: PAIN
     Dosage: 4 MG, ONCE, INTRAVENOUS (NOT OTHERWISE SPECIFIED)
     Route: 042
     Dates: start: 20110419, end: 20110419

REACTIONS (2)
  - INFUSION SITE URTICARIA [None]
  - INFUSION SITE PRURITUS [None]
